FAERS Safety Report 7363696-0 (Version None)
Quarter: 2011Q1

REPORT INFORMATION
  Report Type: 
  Country: None (occurrence: None)
  Receive Date: 20110321
  Receipt Date: 20110126
  Transmission Date: 20110831
  Serious: No
  Sender: FDA-Public Use
  Company Number: A0903383B

PATIENT
  Age: 61 Year
  Sex: Female

DRUGS (10)
  1. ALPRAZOLAM [Concomitant]
  2. SENNA UNSPECIFIED [Concomitant]
  3. PROMACTA [Suspect]
     Indication: THROMBOCYTOPENIA
     Dosage: 75MG PER DAY
     Route: 048
  4. AMBIEN CR [Concomitant]
  5. LYRICA [Concomitant]
  6. NEXIUM [Concomitant]
  7. LEVOXYL [Concomitant]
  8. MULTIVITAMIN [Concomitant]
  9. ZOMETA [Concomitant]
  10. OXYCODONE/ACETAMINOPHEN [Concomitant]

REACTIONS (2)
  - ONYCHOMYCOSIS [None]
  - ALOPECIA [None]
